FAERS Safety Report 4294465-6 (Version None)
Quarter: 2004Q1

REPORT INFORMATION
  Report Type: 
  Country: None (occurrence: None)
  Receive Date: 20040211
  Receipt Date: 20040129
  Transmission Date: 20041129
  Serious: Yes (Hospitalization, Other)
  Sender: FDA-Public Use
  Company Number: 2003119640

PATIENT
  Age: 58 Year
  Sex: Male
  Weight: 43.9989 kg

DRUGS (7)
  1. SORTIS (ATORVASTATIN) [Suspect]
     Indication: DYSLIPIDAEMIA
     Dosage: 20 MG, ORAL
     Route: 048
     Dates: start: 20031029, end: 20031106
  2. QUINIDINE SULFATE [Suspect]
     Indication: ATRIAL FIBRILLATION
     Dosage: 8 TBSP (DAILY), ORAL
     Route: 048
     Dates: start: 20031030, end: 20031104
  3. DIGOXIN [Suspect]
     Indication: ATRIAL FIBRILLATION
     Dosage: 0.3 M (DAILY), ORAL
     Route: 048
     Dates: start: 20031030, end: 20031130
  4. VERAPAMIL HCL [Suspect]
     Indication: ATRIAL FIBRILLATION
     Dosage: 480 MG (DAILY), ORAL
     Route: 048
     Dates: start: 20031030, end: 20031130
  5. HYDROCHLOROTHIAZIDE [Concomitant]
  6. OSYROL-LASIX (SPIRONOLACTONE, FUROSEMIDE) [Concomitant]
  7. SERTRALINE HCL [Concomitant]

REACTIONS (7)
  - ALANINE AMINOTRANSFERASE INCREASED [None]
  - ASPARTATE AMINOTRANSFERASE INCREASED [None]
  - BLOOD CREATINE PHOSPHOKINASE INCREASED [None]
  - BLOOD LACTATE DEHYDROGENASE INCREASED [None]
  - HEPATIC ENZYME INCREASED [None]
  - MYOGLOBIN BLOOD INCREASED [None]
  - RENAL FAILURE [None]
